FAERS Safety Report 24005388 (Version 1)
Quarter: 2024Q2

REPORT INFORMATION
  Report Type: Spontaneous
  Country: GB (occurrence: GB)
  Receive Date: 20240624
  Receipt Date: 20240624
  Transmission Date: 20240716
  Serious: Yes (Hospitalization, Other)
  Sender: FDA-Public Use
  Company Number: GB-PFM-2024-03597

PATIENT
  Age: 22 Year
  Sex: Male
  Weight: 113 kg

DRUGS (9)
  1. BINIMETINIB [Suspect]
     Active Substance: BINIMETINIB
     Indication: Craniopharyngioma
     Dosage: 45 MG, BID (2/DAY)
     Route: 048
     Dates: start: 20240604, end: 20240613
  2. BINIMETINIB [Suspect]
     Active Substance: BINIMETINIB
     Indication: Off label use
  3. HYDROCORTISONE [Concomitant]
     Active Substance: HYDROCORTISONE\HYDROCORTISONE ACETATE
     Indication: Hypopituitarism
     Dosage: 40 MG, DAILY
     Route: 048
  4. DESMOPRESSIN [Concomitant]
     Active Substance: DESMOPRESSIN
     Indication: Hypopituitarism
     Dosage: UNK UNK, DAILY
     Route: 065
  5. LEVOTHYROXINE [Concomitant]
     Active Substance: LEVOTHYROXINE\LEVOTHYROXINE SODIUM
     Indication: Hypopituitarism
     Dosage: 200 UG, DAILY
     Route: 048
  6. NEBIDO [TESTOSTERONE UNDECANOATE] [Concomitant]
     Indication: Hypopituitarism
     Dosage: 1000 MG EVERY 12 WEEKS
     Route: 065
  7. CHOLECALCIFEROL [Concomitant]
     Active Substance: CHOLECALCIFEROL
     Indication: Vitamin D deficiency
     Dosage: 10,000 UNITS WEEKLY (EVERY SATURDAY)
     Route: 048
  8. PIPERACILLIN AND TAZOBACTAM [Concomitant]
     Active Substance: PIPERACILLIN SODIUM\TAZOBACTAM SODIUM
     Dosage: 4.5 G, EVERY 6 HOURS
     Route: 048
     Dates: start: 20240613
  9. GENTAMICIN [Concomitant]
     Active Substance: GENTAMICIN
     Dosage: 350 MG
     Route: 065
     Dates: start: 20240613

REACTIONS (3)
  - Syncope [Recovered/Resolved]
  - Diarrhoea [Recovered/Resolved]
  - Off label use [Unknown]

NARRATIVE: CASE EVENT DATE: 20240604
